FAERS Safety Report 26121586 (Version 2)
Quarter: 2025Q4

REPORT INFORMATION
  Report Type: Spontaneous
  Country: EU (occurrence: EU)
  Receive Date: 20251204
  Receipt Date: 20251205
  Transmission Date: 20260119
  Serious: Yes (Hospitalization, Other)
  Sender: NOVARTIS
  Company Number: EU-002147023-NVSC2025PL185261

PATIENT
  Age: 40 Year
  Sex: Female

DRUGS (1)
  1. TASIGNA [Suspect]
     Active Substance: NILOTINIB
     Indication: Chronic myeloid leukaemia
     Dosage: 400 MG, BID (2X400)
     Route: 065
     Dates: start: 202304, end: 20251010

REACTIONS (4)
  - Cerebrovascular accident [Unknown]
  - Cerebral arteritis [Unknown]
  - Giant cell arteritis [Unknown]
  - Leukopenia [Unknown]

NARRATIVE: CASE EVENT DATE: 20251010
